FAERS Safety Report 11984978 (Version 2)
Quarter: 2016Q1

REPORT INFORMATION
  Report Type: Spontaneous
  Country: US (occurrence: US)
  Receive Date: 20160201
  Receipt Date: 20160212
  Transmission Date: 20160526
  Serious: Yes (Life-Threatening, Hospitalization, Other)
  Sender: FDA-Public Use
  Company Number: US-ABBVIE-16P-163-1550736-00

PATIENT
  Sex: Female

DRUGS (2)
  1. TECHNIVIE [Suspect]
     Active Substance: OMBITASVIR HEMINONAHYDRATE\PARITAPREVIR DIHYDRATE\RITONAVIR
     Indication: HEPATITIS C
     Dosage: 12.5MG/75MG/50MG, IN THE MORNING
     Route: 048
     Dates: start: 201510
  2. RIBASPHERE [Suspect]
     Active Substance: RIBAVIRIN
     Indication: HEPATITIS C
     Dosage: MORNING AND EVENING
     Route: 048
     Dates: start: 201510

REACTIONS (16)
  - Type 2 diabetes mellitus [Not Recovered/Not Resolved]
  - Decreased appetite [Recovered/Resolved]
  - Blood potassium decreased [Not Recovered/Not Resolved]
  - White blood cell count decreased [Unknown]
  - Pruritus [Recovered/Resolved]
  - Weight decreased [Unknown]
  - Arthropathy [Unknown]
  - Hypertension [Unknown]
  - Blood glucose decreased [Unknown]
  - Psychotic disorder [Recovered/Resolved]
  - Pneumonia [Unknown]
  - Alopecia [Recovered/Resolved]
  - Malaise [Recovered/Resolved]
  - Heart rate increased [Unknown]
  - Anxiety [Unknown]
  - Mood altered [Recovered/Resolved]
